FAERS Safety Report 5763993-6 (Version None)
Quarter: 2008Q2

REPORT INFORMATION
  Report Type: 
  Country: None (occurrence: None)
  Receive Date: 20080609
  Receipt Date: 20080304
  Transmission Date: 20081010
  Serious: No
  Sender: FDA-Public Use
  Company Number: 002#2#2008-00092

PATIENT
  Age: 61 Year
  Sex: Female
  Weight: 48.5349 kg

DRUGS (3)
  1. NEUPRO [Suspect]
     Indication: PARKINSON'S DISEASE
     Dosage: 2MG/24H,1 IN 1 D,TRANSDERMAL
     Route: 062
     Dates: start: 20080228
  2. SINEMET CR [Concomitant]
  3. ESTROGENIC SUBSTANCE [Concomitant]

REACTIONS (1)
  - BLOOD GLUCOSE INCREASED [None]
